FAERS Safety Report 23083229 (Version 1)
Quarter: 2023Q4

REPORT INFORMATION
  Report Type: Spontaneous
  Country: US (occurrence: None)
  Receive Date: 20231018
  Receipt Date: 20231018
  Transmission Date: 20240109
  Serious: Yes (Hospitalization)
  Sender: FDA-Public Use
  Company Number: None

PATIENT
  Age: 95 Year
  Sex: Male
  Weight: 60 kg

DRUGS (2)
  1. SERTRALINE HYDROCHLORIDE [Suspect]
     Active Substance: SERTRALINE HYDROCHLORIDE
     Dates: start: 20220907, end: 20221003
  2. VENLAFAXINE [Suspect]
     Dates: end: 20221003

REACTIONS (2)
  - Hyponatraemia [None]
  - Therapy cessation [None]

NARRATIVE: CASE EVENT DATE: 20220919
